FAERS Safety Report 13466621 (Version 1)
Quarter: 2017Q2

REPORT INFORMATION
  Report Type: Spontaneous
  Country: US (occurrence: US)
  Receive Date: 20170420
  Receipt Date: 20170420
  Transmission Date: 20170830
  Serious: No
  Sender: FDA-Public Use
  Company Number: None

PATIENT
  Age: 14 Year
  Sex: Male

DRUGS (1)
  1. HUMIRA [Suspect]
     Active Substance: ADALIMUMAB
     Indication: MALAISE
     Route: 058
     Dates: start: 20161025

REACTIONS (4)
  - Erythema [None]
  - Sensory disturbance [None]
  - Pruritus [None]
  - Local swelling [None]

NARRATIVE: CASE EVENT DATE: 20161101
